FAERS Safety Report 4863798-4 (Version None)
Quarter: 2005Q4

REPORT INFORMATION
  Report Type: 
  Country: None (occurrence: None)
  Receive Date: 20051222
  Receipt Date: 20050901
  Transmission Date: 20060501
  Serious: No
  Sender: FDA-Public Use
  Company Number: US-GLAXOSMITHKLINE-A0572754A

PATIENT
  Age: 77 Year
  Sex: Female

DRUGS (3)
  1. FLONASE [Suspect]
     Indication: DRUG USE FOR UNKNOWN INDICATION
     Dosage: 2SPR TWICE PER DAY
     Route: 045
     Dates: start: 20050316
  2. BLOOD PRESSURE MEDICATION [Concomitant]
  3. EYE DROPS [Concomitant]
     Indication: GLAUCOMA

REACTIONS (5)
  - ANOSMIA [None]
  - DECREASED APPETITE [None]
  - SENSORY DISTURBANCE [None]
  - TONGUE COATED [None]
  - WEIGHT DECREASED [None]
